FAERS Safety Report 8564910-6 (Version None)
Quarter: 2012Q3

REPORT INFORMATION
  Report Type: 
  Country: None (occurrence: None)
  Receive Date: 20120723
  Receipt Date: 20120706
  Transmission Date: 20120928
  Serious: Yes (Other)
  Sender: FDA-Public Use
  Company Number: GGEL20120700866

PATIENT
  Age: 13 Month
  Sex: Female

DRUGS (1)
  1. LAMOTRIGINE [Suspect]
     Indication: ACCIDENTAL OVERDOSE
     Dosage: FOUR 200MG TABLETS

REACTIONS (9)
  - CONVULSION [None]
  - TONIC CLONIC MOVEMENTS [None]
  - ATAXIA [None]
  - BLOOD PRESSURE DECREASED [None]
  - NYSTAGMUS [None]
  - BLOOD GLUCOSE INCREASED [None]
  - TOXICITY TO VARIOUS AGENTS [None]
  - ACCIDENTAL DRUG INTAKE BY CHILD [None]
  - MYOCLONIC EPILEPSY [None]
